FAERS Safety Report 15374589 (Version 1)
Quarter: 2018Q3

REPORT INFORMATION
  Report Type: Spontaneous
  Country: US (occurrence: US)
  Receive Date: 20180906
  Receipt Date: 20180906
  Transmission Date: 20181010
  Serious: No
  Sender: FDA-Public Use
  Company Number: None

PATIENT
  Age: 69 Year
  Sex: Female

DRUGS (1)
  1. AFINITOR [Suspect]
     Active Substance: EVEROLIMUS
     Dosage: 03/08/18 ? 11?JUL?2017
     Dates: start: 20180308

REACTIONS (1)
  - Stomatitis [None]

NARRATIVE: CASE EVENT DATE: 20180827
